FAERS Safety Report 15327740 (Version 1)
Quarter: 2018Q3

REPORT INFORMATION
  Report Type: Spontaneous
  Country: US (occurrence: US)
  Receive Date: 20180828
  Receipt Date: 20180828
  Transmission Date: 20181010
  Serious: Yes (Other)
  Sender: FDA-Public Use
  Company Number: US-CELGENEUS-USA-20180806507

PATIENT
  Sex: Male

DRUGS (11)
  1. REVLIMID [Suspect]
     Active Substance: LENALIDOMIDE
     Dosage: 25 MILLIGRAM
     Route: 048
     Dates: start: 200611
  2. REVLIMID [Suspect]
     Active Substance: LENALIDOMIDE
     Dosage: 25 MILLIGRAM
     Route: 048
     Dates: start: 201201
  3. REVLIMID [Suspect]
     Active Substance: LENALIDOMIDE
     Dosage: 25 MILLIGRAM
     Route: 048
     Dates: start: 201709
  4. REVLIMID [Suspect]
     Active Substance: LENALIDOMIDE
     Dosage: 10MG ? 25MG
     Route: 048
     Dates: start: 200811
  5. REVLIMID [Suspect]
     Active Substance: LENALIDOMIDE
     Dosage: 10MG ? 50MG
     Route: 048
     Dates: start: 200901
  6. REVLIMID [Suspect]
     Active Substance: LENALIDOMIDE
     Dosage: 20MG ? 25MG
     Route: 048
     Dates: start: 201001
  7. REVLIMID [Suspect]
     Active Substance: LENALIDOMIDE
     Dosage: 10MG ? 25MG
     Route: 048
     Dates: start: 201406
  8. REVLIMID [Suspect]
     Active Substance: LENALIDOMIDE
     Dosage: 10MG ? 20MG
     Route: 048
     Dates: start: 200609
  9. REVLIMID [Suspect]
     Active Substance: LENALIDOMIDE
     Indication: PLASMA CELL MYELOMA
     Dosage: 25 MILLIGRAM
     Route: 048
     Dates: start: 200608
  10. REVLIMID [Suspect]
     Active Substance: LENALIDOMIDE
     Dosage: 10MG ? 25MG
     Route: 048
     Dates: start: 200903
  11. REVLIMID [Suspect]
     Active Substance: LENALIDOMIDE
     Dosage: 25MG ? 50MG
     Route: 048
     Dates: start: 201211

REACTIONS (4)
  - Hip fracture [Unknown]
  - Impaired healing [Unknown]
  - Arthropathy [Unknown]
  - Fall [Unknown]
